FAERS Safety Report 9243436 (Version 2)
Quarter: 2013Q2

REPORT INFORMATION
  Report Type: Spontaneous
  Country: CA (occurrence: CA)
  Receive Date: 20130421
  Receipt Date: 20130621
  Transmission Date: 20140414
  Serious: Yes (Hospitalization)
  Sender: FDA-Public Use
  Company Number: CA-AMGEN-CANSP2013024700

PATIENT
  Age: 44 Year
  Sex: Male

DRUGS (5)
  1. NEUPOGEN [Suspect]
     Indication: PRODUCT USED FOR UNKNOWN INDICATION
     Dosage: 1ML/300 MCG
     Route: 065
     Dates: start: 20120623, end: 20130325
  2. CLONAZEPAM [Concomitant]
     Dosage: UNK
  3. CISPLATIN [Concomitant]
     Dosage: UNK
  4. IFOSFAMIDE [Concomitant]
     Dosage: UNK
  5. PACLITAXEL [Concomitant]
     Dosage: UNK

REACTIONS (5)
  - Vomiting [Unknown]
  - Bone pain [Unknown]
  - Adverse drug reaction [Unknown]
  - Pain in extremity [Unknown]
  - Arthralgia [Unknown]
